FAERS Safety Report 4585133-1 (Version None)
Quarter: 2005Q1

REPORT INFORMATION
  Report Type: 
  Country: None (occurrence: None)
  Receive Date: 20050217
  Receipt Date: 20050106
  Transmission Date: 20050727
  Serious: No
  Sender: FDA-Public Use
  Company Number: US-GLAXOSMITHKLINE-A0539678A

PATIENT
  Age: 52 Year
  Sex: Female
  Weight: 56.8 kg

DRUGS (2)
  1. WELLBUTRIN XL [Suspect]
     Indication: ILL-DEFINED DISORDER
     Route: 048
     Dates: start: 20041104
  2. BLACK COHOSH [Concomitant]
     Route: 065

REACTIONS (5)
  - PRURITUS [None]
  - RASH [None]
  - SWELLING FACE [None]
  - SWOLLEN TONGUE [None]
  - URTICARIA [None]
